FAERS Safety Report 23124760 (Version 1)
Quarter: 2023Q4

REPORT INFORMATION
  Report Type: Spontaneous
  Country: US (occurrence: None)
  Receive Date: 20231028
  Receipt Date: 20231028
  Transmission Date: 20240110
  Serious: Yes (Hospitalization)
  Sender: FDA-Public Use
  Company Number: None

PATIENT
  Age: 65 Year
  Sex: Male
  Weight: 68.5 kg

DRUGS (2)
  1. CARBOPLATIN [Suspect]
     Active Substance: CARBOPLATIN
     Dates: end: 20231016
  2. TAXOL [Suspect]
     Active Substance: PACLITAXEL
     Dates: end: 20231016

REACTIONS (13)
  - Pain [None]
  - Decreased appetite [None]
  - Dysphagia [None]
  - Dysphonia [None]
  - Oropharyngeal pain [None]
  - Radiation oesophagitis [None]
  - Urinary retention [None]
  - Odynophagia [None]
  - Lung opacity [None]
  - Inflammation [None]
  - Infection [None]
  - Metastasis [None]
  - Pneumonia [None]

NARRATIVE: CASE EVENT DATE: 20231019
